FAERS Safety Report 19781418 (Version 1)
Quarter: 2021Q3

REPORT INFORMATION
  Report Type: Spontaneous
  Country: US (occurrence: US)
  Receive Date: 20210903
  Receipt Date: 20210903
  Transmission Date: 20211014
  Serious: Yes (Other)
  Sender: FDA-Public Use
  Company Number: US-PURDUE-USA-2020-0197137

PATIENT

DRUGS (1)
  1. OXYCODONE/ ACETAMINOPHEN TABLETS [Suspect]
     Active Substance: ACETAMINOPHEN\OXYCODONE HYDROCHLORIDE
     Indication: PRODUCT USED FOR UNKNOWN INDICATION
     Dosage: UNK
     Route: 048

REACTIONS (22)
  - Irritability [Unknown]
  - Anxiety [Unknown]
  - Tremor [Unknown]
  - Hepatitis [Unknown]
  - Impulsive behaviour [Unknown]
  - Muscle tightness [Unknown]
  - Mood altered [Unknown]
  - Anger [Unknown]
  - Aggression [Unknown]
  - Depression [Unknown]
  - Dry mouth [Unknown]
  - Muscle twitching [Unknown]
  - Hallucination [Unknown]
  - Hostility [Unknown]
  - Memory impairment [Unknown]
  - Psychomotor hyperactivity [Unknown]
  - Sleep disorder [Unknown]
  - Weight increased [Unknown]
  - Euphoric mood [Unknown]
  - Depressed mood [Unknown]
  - Nervousness [Unknown]
  - Initial insomnia [Unknown]
